FAERS Safety Report 9716974 (Version 2)
Quarter: 2015Q3

REPORT INFORMATION
  Report Type: Spontaneous
  Country: US (occurrence: US)
  Receive Date: 20131127
  Receipt Date: 20150803
  Transmission Date: 20151125
  Serious: No
  Sender: FDA-Public Use
  Company Number: US-GILEAD-2009-0020153

PATIENT
  Age: 31 Year
  Sex: Female
  Weight: 115.67 kg

DRUGS (13)
  1. ALBUTEROL. [Concomitant]
     Active Substance: ALBUTEROL
  2. OXYGEN. [Concomitant]
     Active Substance: OXYGEN
  3. ALDACTONE [Concomitant]
     Active Substance: SPIRONOLACTONE
  4. CARISOPRODOL. [Concomitant]
     Active Substance: CARISOPRODOL
  5. TEMAZEPAM. [Concomitant]
     Active Substance: TEMAZEPAM
  6. SEROQUEL [Concomitant]
     Active Substance: QUETIAPINE FUMARATE
  7. MIRTAZAPINE. [Concomitant]
     Active Substance: MIRTAZAPINE
  8. LAMICTAL [Concomitant]
     Active Substance: LAMOTRIGINE
  9. LEXAPRO [Concomitant]
     Active Substance: ESCITALOPRAM OXALATE
  10. REVATIO [Concomitant]
     Active Substance: SILDENAFIL CITRATE
  11. LETAIRIS [Suspect]
     Active Substance: AMBRISENTAN
     Indication: PULMONARY ARTERIAL HYPERTENSION
     Route: 048
     Dates: start: 20070915
  12. FLUOXETINE [Concomitant]
     Active Substance: FLUOXETINE\FLUOXETINE HYDROCHLORIDE
  13. HYDROCODONE-APAP [Concomitant]
     Active Substance: ACETAMINOPHEN\HYDROCODONE

REACTIONS (1)
  - Swelling [Unknown]
